FAERS Safety Report 5473082-6 (Version None)
Quarter: 2007Q4

REPORT INFORMATION
  Report Type: 
  Country: None (occurrence: None)
  Receive Date: 20071001
  Receipt Date: 20070319
  Transmission Date: 20080405
  Serious: No
  Sender: FDA-Public Use
  Company Number: US-ASTRAZENECA-2007UW05322

PATIENT
  Age: 65 Year
  Sex: Female
  Weight: 68 kg

DRUGS (4)
  1. ARIMIDEX [Suspect]
     Indication: BREAST CANCER
     Route: 048
     Dates: start: 20061014
  2. NORVASC [Concomitant]
  3. VITAMINS [Concomitant]
  4. SAME VITAMIN [Concomitant]

REACTIONS (3)
  - CRYING [None]
  - METASTASIS [None]
  - RENAL CYST [None]
